FAERS Safety Report 17813589 (Version 3)
Quarter: 2020Q3

REPORT INFORMATION
  Report Type: Spontaneous
  Country: JP (occurrence: JP)
  Receive Date: 20200521
  Receipt Date: 20200702
  Transmission Date: 20201102
  Serious: Yes (Death, Hospitalization)
  Sender: FDA-Public Use
  Company Number: JP-CELGENEUS-JPN-20200506328

PATIENT
  Sex: Female

DRUGS (1)
  1. REVLIMID [Suspect]
     Active Substance: LENALIDOMIDE
     Indication: ADULT T-CELL LYMPHOMA/LEUKAEMIA
     Route: 048
     Dates: start: 20200210, end: 20200430

REACTIONS (3)
  - Condition aggravated [Unknown]
  - Adult T-cell lymphoma/leukaemia [Fatal]
  - Pyrexia [Unknown]

NARRATIVE: CASE EVENT DATE: 2020
